FAERS Safety Report 8444823-0 (Version None)
Quarter: 2012Q2

REPORT INFORMATION
  Report Type: 
  Country: None (occurrence: None)
  Receive Date: 20120611
  Receipt Date: 20120530
  Transmission Date: 20120825
  Serious: Yes (Hospitalization, Disabling, Other)
  Sender: FDA-Public Use
  Company Number: 2011MA003478

PATIENT
  Sex: Female
  Weight: 102.5129 kg

DRUGS (110)
  1. NAPROXEN (ALEVE) [Concomitant]
  2. AMBIEN [Concomitant]
  3. AZITHROMYCIN [Concomitant]
  4. CARDIZEM [Concomitant]
  5. CEFUROXIME AXETIL [Concomitant]
  6. FLUTICASONE [Concomitant]
  7. FORTEO [Concomitant]
  8. LEVAQUIN [Concomitant]
  9. LISINOPRIL [Concomitant]
  10. METFORMIN HCL [Concomitant]
  11. METHYLPREDNISOLONE ACETATE [Concomitant]
  12. NAPROSYN [Concomitant]
  13. PLAQUENIL [Concomitant]
  14. QUININE SULFATE [Concomitant]
  15. SIMVASTATIN [Concomitant]
  16. SULFAMETHOXAZOLE AND TRIMETHOPRIM [Concomitant]
  17. TOBRADEX OPHTHALMIC [Concomitant]
  18. TRAMADOL HCL [Concomitant]
  19. VITAMIN D2 [Concomitant]
  20. METOCLOPRAMIDE [Suspect]
     Indication: GASTROOESOPHAGEAL REFLUX DISEASE
     Dosage: 10 MG;QID;PO
     Route: 048
     Dates: start: 20010201, end: 20091001
  21. ACTOS [Concomitant]
  22. BIAXIN [Concomitant]
  23. CYCLOBENZAPRINE [Concomitant]
  24. DOXYCYCLINE [Concomitant]
  25. GLUCOPHAGE [Concomitant]
  26. HYDROXYCHLOROQUINE SULFATE [Concomitant]
  27. HYDROXYZINE [Concomitant]
  28. MEDROL [Concomitant]
  29. PHENERGAN [Concomitant]
  30. PROMETHAZINE [Concomitant]
  31. TAXOL [Concomitant]
  32. ZYRTEC [Concomitant]
  33. AMPICILLIN [Concomitant]
  34. BACTRIM [Concomitant]
  35. DICLOFENAC SODIUM [Concomitant]
  36. DIPYRIDAMOLE [Concomitant]
  37. FOLIC ACID [Concomitant]
  38. GLIPIZIDE [Concomitant]
  39. HYDROCODONE BITARTRATE AND ACETAMINOPHEN [Concomitant]
  40. LYRICA [Concomitant]
  41. MECLIZINE [Concomitant]
  42. NASONEX [Concomitant]
  43. NITRO-BID OINTMENT [Concomitant]
  44. NITROGLYCERIN [Concomitant]
  45. PERSANTINE [Concomitant]
  46. PLAVIX [Concomitant]
  47. RANITIDINE [Concomitant]
  48. VITAMIN D [Concomitant]
  49. ZITHROMAX [Concomitant]
  50. ALLEGRA [Concomitant]
  51. AVELOX [Concomitant]
  52. BACITRACIN TOPICAL OINTMENT [Concomitant]
  53. OXYCODONE HCL AND ACETAMINOPHEN [Concomitant]
  54. GLUCOTROL [Concomitant]
  55. KLONOPIN [Concomitant]
  56. LEXAPRO [Concomitant]
  57. MIACALCIN [Concomitant]
  58. ORPHENADRINE CITRATE [Concomitant]
  59. PROPOXYPHENE NAPSYLATE [Concomitant]
  60. SEREVENT [Concomitant]
  61. WARFARIN SODIUM [Concomitant]
  62. ACYCLOVIR [Concomitant]
  63. ALTOPREV [Concomitant]
  64. AMOXICILLIN AND CLAVULANATE POTASSIUM [Concomitant]
  65. ANTIVERT [Concomitant]
  66. CEFADROXIL [Concomitant]
  67. CORAL CALCIUM [Concomitant]
  68. COUMADIN [Concomitant]
  69. LIDOCAINE HCL VISCOUS [Concomitant]
  70. MELOXICAM [Concomitant]
  71. PREVACID [Concomitant]
  72. PROPOXYPHENE NAPSYLATE AND ACETAMINOPHEN [Concomitant]
  73. PHENAZOPYRIDINE HCL TAB [Concomitant]
  74. ACETAMINOPHEN [Concomitant]
  75. VIOXX [Concomitant]
  76. VISTARIL [Concomitant]
  77. ACTONEL [Concomitant]
  78. ASMANEX TWISTHALER [Concomitant]
  79. AVANDIA [Concomitant]
  80. CLONAZEPAM [Concomitant]
  81. DECADRON [Concomitant]
  82. DEMEROL [Concomitant]
  83. DILTIAZEM [Concomitant]
  84. DILTIAZEM [Concomitant]
  85. ETODOLAC [Concomitant]
  86. FEXOFENADINE [Concomitant]
  87. HALDOL [Concomitant]
  88. HUMIRA [Concomitant]
  89. PHENAZPYRIDINE [Concomitant]
  90. VICOPROFEN [Concomitant]
  91. VYTORIN [Concomitant]
  92. CEPHALEXIN [Concomitant]
  93. CIPROFLOXACIN HCL [Concomitant]
  94. DARVOCET [Concomitant]
  95. FLOVENT [Concomitant]
  96. METHOTREXATE [Concomitant]
  97. NASACORT [Concomitant]
  98. NITROFURANTOIN [Concomitant]
  99. STEROID INJECTIONS [Concomitant]
  100. TRAZODONE HCL [Concomitant]
  101. AMOXICILLIN [Concomitant]
  102. ASPIRIN [Concomitant]
  103. CLACIUM/VITAMIN D [Concomitant]
  104. CRESTOR [Concomitant]
  105. DIAZEPAM [Concomitant]
  106. HALOPERIDOL [Concomitant]
  107. LIDOCAINE [Concomitant]
  108. SERTRALINE HYDROCHLORIDE [Concomitant]
  109. THEOPHYLLINE [Concomitant]
  110. ASCORBIC ACID [Concomitant]

REACTIONS (84)
  - TARDIVE DYSKINESIA [None]
  - FALL [None]
  - ATRIAL FLUTTER [None]
  - MENISCAL DEGENERATION [None]
  - ROTATOR CUFF SYNDROME [None]
  - CATARACT [None]
  - DRUG HYPERSENSITIVITY [None]
  - REFUSAL OF TREATMENT BY PATIENT [None]
  - TREMOR [None]
  - CELLULITIS [None]
  - INTERVERTEBRAL DISC PROTRUSION [None]
  - HERPES ZOSTER [None]
  - ANGINA UNSTABLE [None]
  - ANAEMIA [None]
  - URINARY TRACT INFECTION [None]
  - VERTIGO [None]
  - STRESS URINARY INCONTINENCE [None]
  - MENISCUS LESION [None]
  - POLYDIPSIA [None]
  - HYPERTENSION [None]
  - MEDICAL DEVICE COMPLICATION [None]
  - ECONOMIC PROBLEM [None]
  - BACK PAIN [None]
  - JOINT SWELLING [None]
  - CONTUSION [None]
  - DIZZINESS [None]
  - SLEEP DISORDER DUE TO GENERAL MEDICAL CONDITION, INSOMNIA TYPE [None]
  - HEADACHE [None]
  - KNEE DEFORMITY [None]
  - DRY MOUTH [None]
  - HERNIA [None]
  - SPINAL COLUMN STENOSIS [None]
  - GAIT DISTURBANCE [None]
  - ASTHENIA [None]
  - POST PROCEDURAL COMPLICATION [None]
  - JOINT EFFUSION [None]
  - BALANCE DISORDER [None]
  - ORAL DISORDER [None]
  - AREFLEXIA [None]
  - BRONCHITIS [None]
  - DYSKINESIA [None]
  - JAW FRACTURE [None]
  - SCIATICA [None]
  - ACTIVITIES OF DAILY LIVING IMPAIRED [None]
  - SLEEP DISORDER [None]
  - THERAPEUTIC RESPONSE DECREASED [None]
  - ACUTE MYOCARDIAL INFARCTION [None]
  - EPISTAXIS [None]
  - UPPER LIMB FRACTURE [None]
  - RHONCHI [None]
  - DYSPNOEA [None]
  - INFECTION [None]
  - HAEMOGLOBIN DECREASED [None]
  - NECK PAIN [None]
  - SCOLIOSIS [None]
  - OEDEMA PERIPHERAL [None]
  - ATRIAL FIBRILLATION [None]
  - NAUSEA [None]
  - VOMITING [None]
  - ARRHYTHMIA [None]
  - RIB FRACTURE [None]
  - RECTAL HAEMORRHAGE [None]
  - PAIN [None]
  - ABASIA [None]
  - DIABETES MELLITUS INADEQUATE CONTROL [None]
  - OSTEOPOROSIS [None]
  - EMOTIONAL DISORDER [None]
  - BRUXISM [None]
  - DIVERTICULUM [None]
  - SPINAL OSTEOARTHRITIS [None]
  - FATIGUE [None]
  - IMPAIRED HEALING [None]
  - DEPRESSION [None]
  - MUSCULOSKELETAL PAIN [None]
  - ABDOMINAL DISCOMFORT [None]
  - SYNOVIAL CYST [None]
  - COUGH [None]
  - ARTHRALGIA [None]
  - SPINAL COMPRESSION FRACTURE [None]
  - ECCHYMOSIS [None]
  - PRESYNCOPE [None]
  - CARDIOMEGALY [None]
  - ORAL PAIN [None]
  - BREATH SOUNDS ABNORMAL [None]
